FAERS Safety Report 10539449 (Version 2)
Quarter: 2014Q4

REPORT INFORMATION
  Report Type: Other
  Country: CA (occurrence: CA)
  Receive Date: 20141023
  Receipt Date: 20141023
  Transmission Date: 20150529
  Serious: Yes (Hospitalization, Other)
  Sender: FDA-Public Use
  Company Number: CA-GSKPPD-2014GSK020719

PATIENT
  Age: 49 Year
  Sex: Male

DRUGS (4)
  1. ASPIRIN. [Concomitant]
     Active Substance: ASPIRIN
  2. DILTIAZEM [Concomitant]
     Active Substance: DILTIAZEM
  3. ALTACE [Concomitant]
     Active Substance: RAMIPRIL
  4. AVANDIA [Suspect]
     Active Substance: ROSIGLITAZONE MALEATE
     Indication: DIABETES MELLITUS
     Dosage: AVANDIA WAS NOT LISTED AMONG THE PATIENTS DISCHARGE RECORDS.
     Route: 048

REACTIONS (3)
  - Silent myocardial infarction [Unknown]
  - Coronary artery disease [Recovered/Resolved]
  - Myocardial ischaemia [Unknown]

NARRATIVE: CASE EVENT DATE: 20010831
